FAERS Safety Report 5463784-X (Version None)
Quarter: 2007Q3

REPORT INFORMATION
  Report Type: 
  Country: None (occurrence: None)
  Receive Date: 20070919
  Receipt Date: 20070905
  Transmission Date: 20080115
  Serious: Yes (Death, Hospitalization)
  Sender: FDA-Public Use
  Company Number: 161217USA

PATIENT
  Age: 32 Year
  Sex: Male

DRUGS (3)
  1. MERCAPTOPURINE [Suspect]
     Indication: CROHN'S DISEASE
     Dosage: 75 MG (75 MG, 1 IN 1 D)
  2. INFLIXIMAB [Suspect]
     Indication: CROHN'S DISEASE
     Dosage: 5 MG/KG
  3. CORTICOSTEROIDS [Suspect]
     Indication: CROHN'S DISEASE
     Dosage: INTRAVENOUS (NOT OTHERWISE SPECIFIED)
     Route: 042

REACTIONS (14)
  - ABDOMINAL PAIN [None]
  - ABDOMINAL SEPSIS [None]
  - CANDIDIASIS [None]
  - ENTEROCOCCAL INFECTION [None]
  - GALLBLADDER NECROSIS [None]
  - GASTRIC PERFORATION [None]
  - GASTROINTESTINAL HAEMORRHAGE [None]
  - HAEMODYNAMIC INSTABILITY [None]
  - LARGE INTESTINE PERFORATION [None]
  - LIVER ABSCESS [None]
  - MUCORMYCOSIS [None]
  - MULTI-ORGAN FAILURE [None]
  - PNEUMOPERITONEUM [None]
  - STENOTROPHOMONAS INFECTION [None]
